FAERS Safety Report 22018486 (Version 1)
Quarter: 2023Q1

REPORT INFORMATION
  Report Type: Spontaneous
  Country: US (occurrence: US)
  Receive Date: 20230222
  Receipt Date: 20230222
  Transmission Date: 20230418
  Serious: Yes (Hospitalization, Other)
  Sender: FDA-Public Use
  Company Number: US-SLATE RUN PHARMACEUTICALS-23US001504

PATIENT

DRUGS (5)
  1. VANCOMYCIN HYDROCHLORIDE [Suspect]
     Active Substance: VANCOMYCIN HYDROCHLORIDE
     Indication: Septic shock
     Dosage: UNK
  2. DAPTOMYCIN [Suspect]
     Active Substance: DAPTOMYCIN
     Indication: Septic shock
     Dosage: 10 MILLIGRAM PER KILOGRAM, QD
  3. DAPTOMYCIN [Suspect]
     Active Substance: DAPTOMYCIN
     Dosage: 12 MILLIGRAM PER KILOGRAM, QD
  4. MEROPENEM [Concomitant]
     Active Substance: MEROPENEM
     Indication: Septic shock
     Dosage: UNK
  5. MICAFUNGIN [Concomitant]
     Active Substance: MICAFUNGIN
     Indication: Septic shock
     Dosage: UNK

REACTIONS (7)
  - Enterococcal infection [Recovered/Resolved]
  - Meningitis enterococcal [Recovered/Resolved]
  - Seizure [Recovered/Resolved]
  - Pleocytosis [Recovered/Resolved]
  - Nystagmus [Recovered/Resolved]
  - Pyrexia [Recovered/Resolved]
  - Pathogen resistance [Recovered/Resolved]
